FAERS Safety Report 14931221 (Version 1)
Quarter: 2018Q2

REPORT INFORMATION
  Report Type: Spontaneous
  Country: US (occurrence: US)
  Receive Date: 20180524
  Receipt Date: 20180524
  Transmission Date: 20180711
  Serious: Yes (Other)
  Sender: FDA-Public Use
  Company Number: US-ROCHE-2125228

PATIENT
  Age: 68 Year
  Sex: Female
  Weight: 49.03 kg

DRUGS (3)
  1. BACLOFEN. [Concomitant]
     Active Substance: BACLOFEN
     Indication: MUSCLE SPASTICITY
     Dosage: YES
     Route: 065
  2. OCREVUS [Suspect]
     Active Substance: OCRELIZUMAB
     Indication: PRIMARY PROGRESSIVE MULTIPLE SCLEROSIS
     Dosage: SPLIT DOSE ;ONGOING: UNKNOWN
     Route: 065
     Dates: start: 20180326
  3. OCREVUS [Suspect]
     Active Substance: OCRELIZUMAB
     Dosage: SECOND HALF SPLIT DOSE
     Route: 065
     Dates: start: 20180409

REACTIONS (4)
  - Hand fracture [Unknown]
  - Fatigue [Unknown]
  - Fall [Unknown]
  - Weight increased [Unknown]

NARRATIVE: CASE EVENT DATE: 20180503
